FAERS Safety Report 6854890-3 (Version None)
Quarter: 2010Q3

REPORT INFORMATION
  Report Type: 
  Country: None (occurrence: None)
  Receive Date: 20100717
  Receipt Date: 20080327
  Transmission Date: 20110219
  Serious: No
  Sender: FDA-Public Use
  Company Number: US-PFIZER INC-2008004597

PATIENT
  Age: 57 Year
  Sex: Male
  Weight: 125 kg

DRUGS (1)
  1. CHANTIX [Suspect]
     Indication: SMOKING CESSATION THERAPY
     Dates: start: 20070901

REACTIONS (5)
  - ABNORMAL DREAMS [None]
  - INCREASED APPETITE [None]
  - IRRITABILITY [None]
  - NAUSEA [None]
  - PERSONALITY CHANGE [None]
